FAERS Safety Report 12192822 (Version 1)
Quarter: 2016Q1

REPORT INFORMATION
  Report Type: Report from Study
  Country: MX (occurrence: MX)
  Receive Date: 20160318
  Receipt Date: 20160318
  Transmission Date: 20160526
  Serious: Yes (Hospitalization)
  Sender: FDA-Public Use
  Company Number: MX-PFIZER INC-2016161604

PATIENT
  Age: 63 Year
  Sex: Female

DRUGS (42)
  1. PREDNISONE. [Concomitant]
     Active Substance: PREDNISONE
     Indication: RHEUMATOID ARTHRITIS
     Dosage: 7.5 MG, 1X/DAY
     Route: 048
     Dates: start: 19950103
  2. DIFENIDOL [Concomitant]
     Indication: GASTROENTERITIS
     Dosage: 25 MG, 1X/DAY
     Route: 030
     Dates: start: 20130319, end: 20130319
  3. ERYTHROMYCIN. [Concomitant]
     Active Substance: ERYTHROMYCIN
     Dosage: 500 MG, 3X/DAY
     Route: 048
     Dates: start: 20150131, end: 20150206
  4. AZULFIDINE [Concomitant]
     Active Substance: SULFASALAZINE
     Dosage: UNK
  5. METHOTREXATE SODIUM. [Suspect]
     Active Substance: METHOTREXATE SODIUM
     Dosage: 7.5 MG, WEEKLY
     Route: 048
     Dates: start: 20150904
  6. AZATHIOPRINE. [Suspect]
     Active Substance: AZATHIOPRINE
     Dosage: UNK
     Route: 048
     Dates: start: 20150318, end: 20150904
  7. METHOTREXATE SODIUM. [Suspect]
     Active Substance: METHOTREXATE SODIUM
     Dosage: 7.5 MG, WEEKLY
     Route: 048
     Dates: start: 20150317, end: 20150609
  8. PRAVASTATIN [Concomitant]
     Active Substance: PRAVASTATIN\PRAVASTATIN SODIUM
     Dosage: 20 MG, 1X/DAY
     Route: 048
     Dates: start: 20121004
  9. PAROXETINE [Concomitant]
     Active Substance: PAROXETINE\PAROXETINE HYDROCHLORIDE
     Indication: NEUROPATHY PERIPHERAL
     Dosage: 20 MG, 1X/DAY
     Route: 048
     Dates: start: 20120302, end: 20131029
  10. PARACETAMOL [Concomitant]
     Active Substance: ACETAMINOPHEN
     Indication: GASTROENTERITIS
     Dosage: 500 MG, 4X/DAY
     Route: 048
     Dates: start: 20130319, end: 20130323
  11. SULFASALAZINE. [Suspect]
     Active Substance: SULFASALAZINE
     Dosage: 3 G, 1X/DAY
     Route: 048
     Dates: start: 20120523, end: 20130723
  12. VENLAFAXINE [Concomitant]
     Active Substance: VENLAFAXINE HYDROCHLORIDE
     Dosage: 75 MG, 1X/DAY
     Route: 048
     Dates: start: 20150904
  13. BEZAFIBRATE [Concomitant]
     Active Substance: BEZAFIBRATE
     Dosage: 200 MG, 1X/DAY
     Route: 048
     Dates: start: 20121127, end: 20130723
  14. CEFTRIAXONE. [Concomitant]
     Active Substance: CEFTRIAXONE
     Indication: GASTROENTERITIS
     Dosage: 1 G, 1X/DAY
     Route: 030
     Dates: start: 20130319, end: 20130321
  15. CINITAPRIDE [Concomitant]
     Dosage: 1 MG, 1X/DAY
     Route: 048
     Dates: start: 20140121, end: 20140415
  16. BROMAZEPAM [Concomitant]
     Active Substance: BROMAZEPAM
     Dosage: 1.5 MG, 1X/DAY
     Route: 048
     Dates: start: 20150904
  17. METHOTREXATE SODIUM. [Suspect]
     Active Substance: METHOTREXATE SODIUM
     Dosage: 17.5 MG, WEEKLY
     Route: 048
     Dates: start: 20070426, end: 20150202
  18. FOLIC ACID. [Concomitant]
     Active Substance: FOLIC ACID
     Indication: RHEUMATOID ARTHRITIS
     Dosage: 5 MG, UNK (1 IN 3 D)
     Route: 048
     Dates: start: 19950103
  19. PAROXETINE [Concomitant]
     Active Substance: PAROXETINE\PAROXETINE HYDROCHLORIDE
     Dosage: 30 MG, 1X/DAY
     Route: 048
     Dates: start: 20131029, end: 20140929
  20. SERETIDE [Concomitant]
     Active Substance: FLUTICASONE FUROATE\SALMETEROL XINAFOATE
     Indication: ASTHMA
     Dosage: 25 UG, 2X/DAY
     Dates: start: 201201
  21. PIRIDOXINA [Concomitant]
     Indication: GASTROENTERITIS
     Dosage: 1 DF, 3X/DAY
     Route: 048
     Dates: start: 20130319, end: 20130323
  22. CLARITHROMYCIN. [Concomitant]
     Active Substance: CLARITHROMYCIN
     Dosage: 500 MG, 2X/DAY
     Route: 048
     Dates: start: 20130720, end: 20130726
  23. AMITRIPTYLINE [Concomitant]
     Active Substance: AMITRIPTYLINE
     Dosage: 25 MG, 1X/DAY
     Route: 048
     Dates: start: 20141222
  24. ETANERCEPT [Suspect]
     Active Substance: ETANERCEPT
     Indication: RHEUMATOID ARTHRITIS
     Dosage: 50 MG, WEEKLY
     Route: 058
  25. AZATHIOPRINE. [Suspect]
     Active Substance: AZATHIOPRINE
     Indication: RHEUMATOID ARTHRITIS
     Dosage: 50 MG, 3X/DAY
     Route: 048
     Dates: start: 20141222, end: 20150317
  26. CALCITRIOL. [Concomitant]
     Active Substance: CALCITRIOL
     Dosage: 0.25 UG, 1X/DAY
     Route: 048
     Dates: start: 20120203
  27. GABAPENTINE [Concomitant]
     Active Substance: GABAPENTIN
     Indication: NEUROPATHY PERIPHERAL
     Dosage: 300 MG, 1X/DAY
     Route: 048
     Dates: start: 20120523, end: 20140414
  28. PREDNISONE. [Concomitant]
     Active Substance: PREDNISONE
     Dosage: 5 MG, 1X/DAY
     Route: 048
     Dates: start: 20150904
  29. CLINDAMYCIN [Concomitant]
     Active Substance: CLINDAMYCIN\CLINDAMYCIN PHOSPHATE
     Dosage: 600 MG, 3X/DAY
     Route: 048
     Dates: start: 20130125, end: 20130202
  30. ETANERCEPT [Suspect]
     Active Substance: ETANERCEPT
     Dosage: UNK
  31. METHOTREXATE SODIUM. [Suspect]
     Active Substance: METHOTREXATE SODIUM
     Dosage: 15 MG, WEEKLY
     Route: 048
     Dates: start: 20150609, end: 20150903
  32. OMEPRAZOLE. [Concomitant]
     Active Substance: OMEPRAZOLE
     Dosage: 20 MG, 2X/DAY
     Route: 048
     Dates: start: 20130723, end: 20130804
  33. OMEPRAZOLE. [Concomitant]
     Active Substance: OMEPRAZOLE
     Dosage: 20 MG, 1X/DAY
     Route: 048
     Dates: start: 20130805
  34. GABAPENTINE [Concomitant]
     Active Substance: GABAPENTIN
     Dosage: 600 MG, 1X/DAY
     Route: 048
     Dates: start: 20140415
  35. CLINDAMYCIN [Concomitant]
     Active Substance: CLINDAMYCIN\CLINDAMYCIN PHOSPHATE
     Dosage: 300 MG, 3X/DAY
     Route: 048
     Dates: start: 20121211, end: 20121217
  36. OMEPRAZOLE. [Concomitant]
     Active Substance: OMEPRAZOLE
     Indication: DYSPEPSIA
     Dosage: 20 MG, 1X/DAY
     Route: 048
     Dates: start: 20070329, end: 20130722
  37. PHENAZOPYRIDINE. [Concomitant]
     Active Substance: PHENAZOPYRIDINE
     Dosage: 100 MG, 3X/DAY
     Route: 048
     Dates: start: 20130720, end: 20130724
  38. PAROXETINE [Concomitant]
     Active Substance: PAROXETINE\PAROXETINE HYDROCHLORIDE
     Dosage: 40 MG, UNK
     Route: 048
     Dates: start: 20140930, end: 20150317
  39. IPRATROPIUM BROMIDE. [Concomitant]
     Active Substance: IPRATROPIUM BROMIDE
     Indication: ASTHMA
     Dosage: 1 DF, UNK
     Dates: start: 201201
  40. CIPROFLOXACINE [Concomitant]
     Active Substance: CIPROFLOXACIN
     Indication: PERINEAL PAIN
     Dosage: 500 MG, 2X/DAY
     Route: 048
     Dates: start: 20121211, end: 20131217
  41. LORATADINE. [Concomitant]
     Active Substance: LORATADINE
     Dosage: 10 MG, 2X/DAY
     Route: 048
     Dates: start: 20130723, end: 20130725
  42. HYDROCHLOROTHIAZIDE. [Concomitant]
     Active Substance: HYDROCHLOROTHIAZIDE
     Indication: OEDEMA PERIPHERAL
     Dosage: 12.5 MG, 1X/DAY
     Route: 048
     Dates: start: 20130805, end: 20131015

REACTIONS (1)
  - Acid peptic disease [Recovered/Resolved]

NARRATIVE: CASE EVENT DATE: 20150818
